FAERS Safety Report 20378211 (Version 1)
Quarter: 2022Q1

REPORT INFORMATION
  Report Type: Spontaneous
  Country: US (occurrence: US)
  Receive Date: 20220126
  Receipt Date: 20220126
  Transmission Date: 20220423
  Serious: Yes (Other)
  Sender: FDA-Public Use
  Company Number: US-BAYER-2022A011147

PATIENT
  Sex: Female

DRUGS (1)
  1. LOTRIMIN AF ANTIFUNGAL [Suspect]
     Active Substance: MICONAZOLE NITRATE
     Dosage: UNK

REACTIONS (3)
  - Congenital neoplasm [Unknown]
  - Paternal exposure timing unspecified [None]
  - Recalled product administered [None]
